FAERS Safety Report 9771350 (Version 2)
Quarter: 2013Q4

REPORT INFORMATION
  Report Type: Spontaneous
  Country: US (occurrence: US)
  Receive Date: 20131218
  Receipt Date: 20131226
  Transmission Date: 20140711
  Serious: Yes (Other)
  Sender: FDA-Public Use
  Company Number: PHEH2013US025926

PATIENT
  Age: 85 Year
  Sex: Female

DRUGS (2)
  1. DIOVAN [Suspect]
     Dosage: UNK (320 MG), UNK
  2. DIOVAN HCT [Suspect]

REACTIONS (3)
  - Carcinoid tumour pulmonary [Unknown]
  - Heart valve incompetence [Unknown]
  - Drug intolerance [Unknown]
